FAERS Safety Report 18044808 (Version 2)
Quarter: 2020Q3

REPORT INFORMATION
  Report Type: Spontaneous
  Country: FR (occurrence: FR)
  Receive Date: 20200720
  Receipt Date: 20200723
  Transmission Date: 20201103
  Serious: Yes (Hospitalization, Other)
  Sender: FDA-Public Use
  Company Number: FR-BAUSCH-BL-2020-020073

PATIENT
  Age: 62 Year
  Sex: Male
  Weight: 84.8 kg

DRUGS (4)
  1. LASILIX [Suspect]
     Active Substance: FUROSEMIDE
     Indication: CARDIAC FAILURE
     Route: 048
  2. GENTAMICINE SULFATE [Suspect]
     Active Substance: GENTAMICIN SULFATE
     Indication: BACTERAEMIA
     Route: 065
     Dates: start: 20160116, end: 20160116
  3. AMOXICILLINE [Suspect]
     Active Substance: AMOXICILLIN
     Indication: BACTERAEMIA
     Route: 042
     Dates: start: 20160116, end: 20160128
  4. RAMIPRIL. [Suspect]
     Active Substance: RAMIPRIL
     Indication: CARDIAC FAILURE
     Route: 048

REACTIONS (1)
  - Acute kidney injury [Recovered/Resolved]

NARRATIVE: CASE EVENT DATE: 201601
